FAERS Safety Report 21545842 (Version 1)
Quarter: 2022Q4

REPORT INFORMATION
  Report Type: Report from Study
  Country: US (occurrence: US)
  Receive Date: 20221103
  Receipt Date: 20221103
  Transmission Date: 20230112
  Serious: Yes (Hospitalization, Other)
  Sender: FDA-Public Use
  Company Number: US-ABBVIE-4185516

PATIENT
  Age: 69 Year
  Sex: Female
  Weight: 73 kg

DRUGS (3)
  1. CREON [Suspect]
     Active Substance: PANCRELIPASE AMYLASE\PANCRELIPASE LIPASE\PANCRELIPASE PROTEASE
     Indication: Enzyme abnormality
     Dosage: STRENGTH: 24000 MILLIGRAM; 2 CAPSULES WITH MEALS AND SNACKS
     Route: 048
     Dates: start: 202202, end: 202208
  2. CREON [Suspect]
     Active Substance: PANCRELIPASE AMYLASE\PANCRELIPASE LIPASE\PANCRELIPASE PROTEASE
     Indication: Enzyme abnormality
     Dosage: STRENGTH: 24000 MILLIGRAM; 3 CAPS WITH HEAVY MEALS 2 CAPS WITH SNACK
     Route: 048
     Dates: start: 202208
  3. LANREOTIDE [Concomitant]
     Active Substance: LANREOTIDE
     Indication: Carcinoid syndrome
     Route: 065

REACTIONS (9)
  - Dehydration [Recovered/Resolved]
  - Diarrhoea [Recovered/Resolved]
  - Illness [Recovered/Resolved]
  - Weight decreased [Not Recovered/Not Resolved]
  - Nausea [Recovered/Resolved]
  - Asthenia [Recovered/Resolved]
  - Feeding disorder [Recovered/Resolved]
  - Peripheral swelling [Recovered/Resolved]
  - Skin exfoliation [Recovered/Resolved]

NARRATIVE: CASE EVENT DATE: 20220201
